FAERS Safety Report 7034071-3 (Version None)
Quarter: 2010Q4

REPORT INFORMATION
  Report Type: 
  Country: None (occurrence: None)
  Receive Date: 20101006
  Receipt Date: 20100927
  Transmission Date: 20110411
  Serious: Yes (Other)
  Sender: FDA-Public Use
  Company Number: 1000015180

PATIENT
  Age: 66 Year
  Sex: Female

DRUGS (2)
  1. ESCITALOPRAM [Suspect]
     Indication: DEPRESSION
     Dosage: 10 MG 910 MG, 1 IN 1 D), ORAL
     Route: 048
     Dates: start: 20100309
  2. ENAPLUS (ENALAPRIL MALEATE) (ENALAPRIL MALEATE) [Concomitant]

REACTIONS (2)
  - CONDITION AGGRAVATED [None]
  - VITREOUS DETACHMENT [None]
